FAERS Safety Report 14664641 (Version 1)
Quarter: 2018Q1

REPORT INFORMATION
  Report Type: Spontaneous
  Country: US (occurrence: US)
  Receive Date: 20180320
  Receipt Date: 20180320
  Transmission Date: 20180509
  Serious: Yes (Other)
  Sender: FDA-Public Use
  Company Number: None

PATIENT
  Sex: Male
  Weight: 85.5 kg

DRUGS (5)
  1. MYRBETRIQ [Suspect]
     Active Substance: MIRABEGRON
     Indication: HYPERTONIC BLADDER
     Dosage: ?          QUANTITY:30 TABLET(S);?
     Route: 048
     Dates: start: 20180201, end: 20180310
  2. ECOTRIN 81 MG LOW STRENGTH [Concomitant]
  3. TAMSULOSIN [Concomitant]
     Active Substance: TAMSULOSIN
  4. AREDS II EYE VITAMINS [Concomitant]
  5. 1/DAY RED YEAST RICE [Concomitant]

REACTIONS (3)
  - Chest discomfort [None]
  - Emotional disorder [None]
  - Anxiety [None]
